FAERS Safety Report 9711597 (Version 2)
Quarter: 2013Q4

REPORT INFORMATION
  Report Type: Spontaneous
  Country: US (occurrence: US)
  Receive Date: 20131126
  Receipt Date: 20131126
  Transmission Date: 20140711
  Serious: No
  Sender: FDA-Public Use
  Company Number: US-BRISTOL-MYERS SQUIBB COMPANY-18776245

PATIENT
  Age: 51 Year
  Sex: Female

DRUGS (3)
  1. BYDUREON [Suspect]
     Dosage: INJECTION
     Dates: start: 20130403
  2. NOVOLOG [Suspect]
     Dosage: 1DF: 110UNITS OF NOVOLOG 70/30,90UNITS
     Route: 058
  3. LANTUS [Suspect]
     Dosage: 1DF:40UNITS INJ,2ND DOSE ON 10APR13,30UNITS QAM AND 90UNITS QPM
     Route: 058

REACTIONS (2)
  - Blood glucose decreased [Unknown]
  - Injection site haemorrhage [Recovered/Resolved]
